FAERS Safety Report 8224412-3 (Version None)
Quarter: 2012Q1

REPORT INFORMATION
  Report Type: 
  Country: None (occurrence: None)
  Receive Date: 20120307
  Receipt Date: 20110613
  Transmission Date: 20120608
  Serious: No
  Sender: FDA-Public Use
  Company Number: PHHY2011US35277

PATIENT
  Age: 7 Year
  Sex: Male

DRUGS (4)
  1. VYVANSE [Concomitant]
  2. AFINITOR [Suspect]
     Indication: GIANT CELL TUMOUR OF TENDON SHEATH
     Dosage: 2.5 MG, DAILY, ORAL
     Route: 048
     Dates: start: 20110409
  3. ZOLOFT [Concomitant]
  4. SINGULAIR [Concomitant]

REACTIONS (1)
  - ANGER [None]
